FAERS Safety Report 23916230 (Version 2)
Quarter: 2024Q4

REPORT INFORMATION
  Report Type: Spontaneous
  Country: US (occurrence: US)
  Receive Date: 20240529
  Receipt Date: 20241218
  Transmission Date: 20250114
  Serious: No
  Sender: UPSHER SMITH LABORATORIES
  Company Number: US-UPSHER-SMITH LABORATORIES, LLC-2024USL00361

PATIENT
  Sex: Female
  Weight: 92.063 kg

DRUGS (9)
  1. KLOR-CON M [Suspect]
     Active Substance: POTASSIUM CHLORIDE
     Indication: Electrolyte substitution therapy
     Dosage: 20 MEQ, 1X/DAY IN THE MORNING
     Route: 048
  2. KLOR-CON M [Suspect]
     Active Substance: POTASSIUM CHLORIDE
     Dosage: 20 MEQ, 1X/DAY, SWITCHED TO TAKING IT AT NIGHT AND EATING SOMETHING WHEN SHE TOOK IT
     Route: 048
  3. CALCIUM [Concomitant]
     Active Substance: CALCIUM
  4. GLIPIZIDE [Concomitant]
     Active Substance: GLIPIZIDE
  5. CINNAMON [CINNAMOMUM CASSIA BARK] [Concomitant]
  6. IBUPROFEN [Concomitant]
     Active Substance: IBUPROFEN
  7. OMEPRAZOLE [Concomitant]
     Active Substance: OMEPRAZOLE
  8. HYDROCHLOROTHIAZIDE [Concomitant]
     Active Substance: HYDROCHLOROTHIAZIDE
  9. UNSPECIFIED INGREDIENT [Concomitant]
     Active Substance: UNSPECIFIED INGREDIENT

REACTIONS (5)
  - Foreign body in mouth [Not Recovered/Not Resolved]
  - Abdominal pain upper [Recovered/Resolved]
  - Diarrhoea [Not Recovered/Not Resolved]
  - Product dose omission in error [Unknown]
  - Product administration error [Recovered/Resolved]
